FAERS Safety Report 9189475 (Version 1)
Quarter: 2013Q1

REPORT INFORMATION
  Report Type: Spontaneous
  Country: US (occurrence: None)
  Receive Date: 20130326
  Receipt Date: 20130326
  Transmission Date: 20140127
  Serious: Yes (Death)
  Sender: FDA-Public Use
  Company Number: None

PATIENT
  Age: 72 Year
  Sex: Male
  Weight: 65.32 kg

DRUGS (3)
  1. METHYLPREDNISOLONE ACETATE [Suspect]
     Indication: SPINAL COLUMN STENOSIS
     Dosage: 80MG/ML PRN EPIDURAL
     Route: 008
     Dates: start: 20120717, end: 20120926
  2. METHYLPREDNISOLONE ACETATE [Suspect]
     Indication: OSTEOARTHRITIS
     Dosage: 80MG/ML PRN EPIDURAL
     Route: 008
     Dates: start: 20120717, end: 20120926
  3. METHYLPREDNISOLONE ACETATE [Suspect]
     Indication: SPINAL OSTEOARTHRITIS
     Dosage: 80MG/ML PRN EPIDURAL
     Route: 008
     Dates: start: 20120717, end: 20120926

REACTIONS (11)
  - Transient ischaemic attack [None]
  - Meningitis [None]
  - Paraplegia [None]
  - Sensory loss [None]
  - Hallucination [None]
  - Hypophagia [None]
  - Abdominal pain [None]
  - Dysuria [None]
  - Lethargy [None]
  - Product contamination [None]
  - Poor quality drug administered [None]
